FAERS Safety Report 23235145 (Version 1)
Quarter: 2023Q4

REPORT INFORMATION
  Report Type: Spontaneous
  Country: US (occurrence: None)
  Receive Date: 20231127
  Receipt Date: 20231127
  Transmission Date: 20240110
  Serious: Yes (Other)
  Sender: FDA-Public Use
  Company Number: None

PATIENT
  Age: 51 Year
  Weight: 114.75 kg

DRUGS (14)
  1. OZEMPIC [Suspect]
     Active Substance: SEMAGLUTIDE
     Indication: Diabetes mellitus
     Dosage: OTHER QUANTITY : 1 INJECTION(S);?OTHER FREQUENCY : WEEKLY;?OTHER ROUTE : INJECTION;?
     Route: 050
  2. OZEMPIC [Suspect]
     Active Substance: SEMAGLUTIDE
     Indication: Weight decreased
  3. PROGRAF [Concomitant]
     Active Substance: TACROLIMUS
  4. PREDNISONE [Concomitant]
     Active Substance: PREDNISONE
  5. FAMOTIDINE [Concomitant]
     Active Substance: FAMOTIDINE
  6. BRILINTA [Concomitant]
     Active Substance: TICAGRELOR
  7. METOPROLOL SUCCINATE [Concomitant]
     Active Substance: METOPROLOL SUCCINATE
  8. ROSUVASTATIN [Concomitant]
     Active Substance: ROSUVASTATIN
  9. ZETIA [Concomitant]
     Active Substance: EZETIMIBE
  10. insulin degludec pen [Concomitant]
  11. insulin lonovolog flex pen [Concomitant]
  12. IRON [Concomitant]
     Active Substance: IRON
  13. VITAMINS [Concomitant]
     Active Substance: VITAMINS
  14. LOW DOSE ASPIRIN [Concomitant]
     Active Substance: ASPIRIN

REACTIONS (8)
  - Dizziness [None]
  - Vision blurred [None]
  - Nausea [None]
  - Headache [None]
  - Pain [None]
  - Feeling abnormal [None]
  - Behaviour disorder [None]
  - Fatigue [None]

NARRATIVE: CASE EVENT DATE: 20231104
